FAERS Safety Report 9605616 (Version 1)
Quarter: 2013Q4

REPORT INFORMATION
  Report Type: Spontaneous
  Country: GR (occurrence: GR)
  Receive Date: 20131008
  Receipt Date: 20131008
  Transmission Date: 20140711
  Serious: Yes (Other)
  Sender: FDA-Public Use
  Company Number: GR-PFIZER INC-2013284637

PATIENT
  Age: 82 Year
  Sex: Male

DRUGS (1)
  1. XANAX [Suspect]
     Dosage: 0.5 MG, 2X/DAY
     Dates: start: 2010

REACTIONS (1)
  - Hypoacusis [Unknown]
